FAERS Safety Report 6824404-2 (Version None)
Quarter: 2010Q3

REPORT INFORMATION
  Report Type: 
  Country: None (occurrence: None)
  Receive Date: 20100708
  Receipt Date: 20061025
  Transmission Date: 20110219
  Serious: Yes (Other)
  Sender: FDA-Public Use
  Company Number: US-PFIZER INC-2006130831

PATIENT
  Sex: Male
  Weight: 56.7 kg

DRUGS (8)
  1. CHANTIX [Suspect]
     Indication: SMOKING CESSATION THERAPY
     Route: 048
     Dates: start: 20061024
  2. HUMALOG [Interacting]
     Indication: DIABETES MELLITUS
  3. IMDUR [Concomitant]
     Route: 048
  4. LOVASTATIN [Concomitant]
     Indication: BLOOD CHOLESTEROL INCREASED
  5. BENICAR [Concomitant]
  6. EFFEXOR [Concomitant]
     Indication: DEPRESSION
  7. LEVOXYL [Concomitant]
     Indication: HYPOTHYROIDISM
  8. PLAVIX [Concomitant]

REACTIONS (3)
  - BLOOD GLUCOSE DECREASED [None]
  - DRUG INTERACTION [None]
  - HUNGER [None]
